FAERS Safety Report 24358777 (Version 1)
Quarter: 2024Q3

REPORT INFORMATION
  Report Type: Spontaneous
  Country: JP (occurrence: JP)
  Receive Date: 20240924
  Receipt Date: 20240924
  Transmission Date: 20241017
  Serious: Yes (Hospitalization)
  Sender: KYOWA
  Company Number: JP-KYOWAKIRIN-2024KK021371

PATIENT
  Age: 8 Decade
  Sex: Male

DRUGS (2)
  1. ISTRADEFYLLINE [Suspect]
     Active Substance: ISTRADEFYLLINE
     Indication: Product used for unknown indication
     Dosage: UNK
     Route: 048
  2. ROPINIROLE HYDROCHLORIDE [Suspect]
     Active Substance: ROPINIROLE HYDROCHLORIDE
     Indication: Parkinson^s disease
     Dosage: 40 MG
     Route: 062

REACTIONS (1)
  - Loss of personal independence in daily activities [Unknown]
